FAERS Safety Report 22624862 (Version 1)
Quarter: 2023Q2

REPORT INFORMATION
  Report Type: Spontaneous
  Country: US (occurrence: None)
  Receive Date: 20230620
  Receipt Date: 20230620
  Transmission Date: 20230722
  Serious: Yes (unspecified)
  Sender: FDA-Public Use
  Company Number: None

PATIENT
  Age: 66 Year
  Sex: Female
  Weight: 71.55 kg

DRUGS (1)
  1. GAMMAGARD [Suspect]
     Active Substance: HUMAN IMMUNOGLOBULIN G
     Indication: COVID-19
     Dosage: OTHER FREQUENCY : Q 4 WEEKS;?
     Route: 041
     Dates: start: 20230523, end: 20230620

REACTIONS (5)
  - Unresponsive to stimuli [None]
  - Oxygen saturation decreased [None]
  - Seizure [None]
  - Confusional state [None]
  - Infusion related reaction [None]

NARRATIVE: CASE EVENT DATE: 20230620
